FAERS Safety Report 10684795 (Version 1)
Quarter: 2014Q4

REPORT INFORMATION
  Report Type: Report from Study
  Country: CA (occurrence: CA)
  Receive Date: 20141231
  Receipt Date: 20141231
  Transmission Date: 20150529
  Serious: Yes (Hospitalization)
  Sender: FDA-Public Use
  Company Number: CA-JNJFOC-20141218500

PATIENT
  Age: 37 Year
  Sex: Female
  Weight: 59.8 kg

DRUGS (1)
  1. REMICADE [Suspect]
     Active Substance: INFLIXIMAB
     Indication: CROHN^S DISEASE
     Dosage: 1ST LOADING DOSE
     Route: 042
     Dates: start: 20141213

REACTIONS (2)
  - Blood pressure decreased [Unknown]
  - Paralysis [Unknown]

NARRATIVE: CASE EVENT DATE: 201412
